FAERS Safety Report 17374599 (Version 1)
Quarter: 2020Q1

REPORT INFORMATION
  Report Type: Spontaneous
  Country: US (occurrence: US)
  Receive Date: 20200205
  Receipt Date: 20200205
  Transmission Date: 20200409
  Serious: No
  Sender: FDA-Public Use
  Company Number: US-LUNDBECK-DKLU3010568

PATIENT
  Sex: Male

DRUGS (1)
  1. ONFI [Suspect]
     Active Substance: CLOBAZAM
     Indication: SEIZURE
     Route: 065
     Dates: start: 20190107

REACTIONS (3)
  - Aggression [Unknown]
  - Obsessive-compulsive disorder [Not Recovered/Not Resolved]
  - Insomnia [Not Recovered/Not Resolved]
